FAERS Safety Report 13396074 (Version 1)
Quarter: 2017Q2

REPORT INFORMATION
  Report Type: Spontaneous
  Country: US (occurrence: US)
  Receive Date: 20170403
  Receipt Date: 20170403
  Transmission Date: 20170830
  Serious: No
  Sender: FDA-Public Use
  Company Number: None

PATIENT
  Age: 29 Year
  Sex: Male

DRUGS (2)
  1. SIROLIMUS TAB 1MG [Suspect]
     Active Substance: SIROLIMUS
     Indication: DRUG THERAPY
  2. SIROLIMUS TAB 1MG [Suspect]
     Active Substance: SIROLIMUS
     Indication: HEART TRANSPLANT

REACTIONS (1)
  - Death [None]

NARRATIVE: CASE EVENT DATE: 20170403
